FAERS Safety Report 21570140 (Version 2)
Quarter: 2023Q2

REPORT INFORMATION
  Report Type: Report from Study
  Country: US (occurrence: US)
  Receive Date: 20221109
  Receipt Date: 20230405
  Transmission Date: 20230722
  Serious: No
  Sender: FDA-Public Use
  Company Number: US-ABBVIE-4136844

PATIENT
  Age: 57 Year
  Sex: Female

DRUGS (2)
  1. HUMIRA [Suspect]
     Active Substance: ADALIMUMAB
     Indication: Rheumatoid arthritis
     Dosage: CITRATE FREE
     Route: 058
  2. HUMIRA [Suspect]
     Active Substance: ADALIMUMAB
     Route: 058
     Dates: start: 20220522

REACTIONS (5)
  - Hypoacusis [Not Recovered/Not Resolved]
  - Weight increased [Unknown]
  - Musculoskeletal disorder [Unknown]
  - Tinnitus [Unknown]
  - Joint swelling [Unknown]

NARRATIVE: CASE EVENT DATE: 20220522
